FAERS Safety Report 12168948 (Version 1)
Quarter: 2016Q1

REPORT INFORMATION
  Report Type: Report from Study
  Country: DE (occurrence: DE)
  Receive Date: 20160310
  Receipt Date: 20160310
  Transmission Date: 20160526
  Serious: Yes (Life-Threatening, Hospitalization, Other)
  Sender: FDA-Public Use
  Company Number: DE-ASTRAZENECA-2015SE97677

PATIENT
  Age: 75 Year
  Sex: Male

DRUGS (15)
  1. AMLODIPINE [Concomitant]
     Active Substance: AMLODIPINE BESYLATE
     Dosage: 10 MG
  2. ENAHEXAL [Concomitant]
     Active Substance: ENALAPRIL MALEATE
     Dosage: 40 MG
  3. DOXAZOSIN [Concomitant]
     Active Substance: DOXAZOSIN\DOXAZOSIN MESYLATE
  4. EMSELEX [Concomitant]
     Active Substance: DARIFENACIN HYDROBROMIDE
  5. EUTHYROX [Concomitant]
     Active Substance: LEVOTHYROXINE SODIUM
  6. LEVOTHYROXINE SODIUM. [Concomitant]
     Active Substance: LEVOTHYROXINE SODIUM
     Dosage: 75 MCG
  7. TERAZOSIN [Concomitant]
     Active Substance: TERAZOSIN\TERAZOSIN HYDROCHLORIDE
     Dosage: 3 MG
  8. TICAGRELOR [Suspect]
     Active Substance: TICAGRELOR
     Indication: THROMBOSIS PROPHYLAXIS
     Route: 048
     Dates: start: 20140203, end: 20150921
  9. PROPIVERINE [Concomitant]
     Active Substance: PROPIVERINE
     Dosage: 30 MG
  10. METOHEXAL [Concomitant]
     Active Substance: METOPROLOL SUCCINATE
     Dosage: 95 MG
  11. SIMVAHEXAL [Concomitant]
     Active Substance: SIMVASTATIN
     Dosage: 40 MG
  12. OPIPRAMOL [Concomitant]
     Active Substance: OPIPRAMOL
     Dosage: 50 MG
  13. ASPIRIN. [Suspect]
     Active Substance: ASPIRIN
     Indication: THROMBOSIS PROPHYLAXIS
     Dosage: MAINTENANCE THERAPY 100 MG DAILY (NON AZ PRODUCT)
     Route: 048
     Dates: end: 20140305
  14. PANTOPRAZOLE SODIUM. [Concomitant]
     Active Substance: PANTOPRAZOLE SODIUM
     Dosage: 80 MG
  15. HYDROCHLOROTHIAZIDE. [Concomitant]
     Active Substance: HYDROCHLOROTHIAZIDE
     Dosage: 12.5 MG

REACTIONS (2)
  - Gastrointestinal haemorrhage [Not Recovered/Not Resolved]
  - Peptic ulcer [Recovered/Resolved]

NARRATIVE: CASE EVENT DATE: 20150920
